FAERS Safety Report 4618789-5 (Version None)
Quarter: 2005Q1

REPORT INFORMATION
  Report Type: 
  Country: None (occurrence: None)
  Receive Date: 20050323
  Receipt Date: 20050304
  Transmission Date: 20050727
  Serious: Yes (Death, Other)
  Sender: FDA-Public Use
  Company Number: F01200402419

PATIENT
  Age: 69 Year
  Sex: Female
  Weight: 84.369 kg

DRUGS (14)
  1. OXALIPLATIN - SOLUTION - 130 MG/M2 [Suspect]
     Indication: NON-SMALL CELL LUNG CANCER
     Dosage: 130 MG/M2 Q3W INTRAVENOUS NOS
     Route: 042
     Dates: start: 20040728, end: 20040728
  2. GEMCITABINE-SOLUTION-750 MG/M2 [Suspect]
     Dosage: 750 MG/M2 Q3W-INTRAVENOUS NOS
     Route: 042
     Dates: start: 20040728, end: 20040728
  3. PARACETAMOL [Concomitant]
  4. MORPHINE SULFATE [Concomitant]
  5. HYDROCODONE BITARTRATE, PARACETAMOL [Concomitant]
  6. ESOMEPRAZOLE [Concomitant]
  7. GLUCOSAMINE [Concomitant]
  8. AMITRIPTYLINE HYDROCHLORIDE [Concomitant]
  9. FLUTICASONE PROPIONATE [Concomitant]
  10. POLYCARBOPHIL CALCIUM [Concomitant]
  11. AZITHROMYCIN [Concomitant]
  12. CEPHALEXIN MONOHYDRATE [Concomitant]
  13. LOPERAMIDE HYDROCHLORIDE [Concomitant]
  14. EPOGEN [Concomitant]

REACTIONS (6)
  - ANAEMIA [None]
  - BLOOD ALKALINE PHOSPHATASE INCREASED [None]
  - FATIGUE [None]
  - HYPOALBUMINAEMIA [None]
  - OEDEMA PERIPHERAL [None]
  - THROMBOCYTOPENIA [None]
